FAERS Safety Report 19057065 (Version 9)
Quarter: 2022Q1

REPORT INFORMATION
  Report Type: Report from Study
  Country: US (occurrence: US)
  Receive Date: 20210324
  Receipt Date: 20220126
  Transmission Date: 20220424
  Serious: Yes (Hospitalization, Other)
  Sender: FDA-Public Use
  Company Number: US-TAKEDA-2021TUS017805

PATIENT
  Age: 44 Year
  Sex: Female
  Weight: 52 kg

DRUGS (10)
  1. TEDUGLUTIDE [Suspect]
     Active Substance: TEDUGLUTIDE
     Indication: Short-bowel syndrome
     Dosage: 2.65 MILLIGRAM, QOD
     Route: 058
     Dates: start: 20210301
  2. TEDUGLUTIDE [Suspect]
     Active Substance: TEDUGLUTIDE
     Indication: Short-bowel syndrome
     Dosage: 2.65 MILLIGRAM, QOD
     Route: 058
     Dates: start: 20210301
  3. TEDUGLUTIDE [Suspect]
     Active Substance: TEDUGLUTIDE
     Indication: Short-bowel syndrome
     Dosage: 2.65 MILLIGRAM, QOD
     Route: 058
     Dates: start: 20210301
  4. TEDUGLUTIDE [Suspect]
     Active Substance: TEDUGLUTIDE
     Indication: Short-bowel syndrome
     Dosage: 2.65 MILLIGRAM, QOD
     Route: 058
     Dates: start: 20210301
  5. TEDUGLUTIDE [Suspect]
     Active Substance: TEDUGLUTIDE
     Dosage: 2.65 MILLIGRAM, QOD
     Route: 058
     Dates: start: 20210324
  6. TEDUGLUTIDE [Suspect]
     Active Substance: TEDUGLUTIDE
     Dosage: 2.65 MILLIGRAM, QOD
     Route: 058
     Dates: start: 20210324
  7. TEDUGLUTIDE [Suspect]
     Active Substance: TEDUGLUTIDE
     Dosage: 2.65 MILLIGRAM, QOD
     Route: 058
     Dates: start: 20210324
  8. TEDUGLUTIDE [Suspect]
     Active Substance: TEDUGLUTIDE
     Dosage: 2.65 MILLIGRAM, QOD
     Route: 058
     Dates: start: 20210324
  9. ZOFRAN [Concomitant]
     Active Substance: ONDANSETRON HYDROCHLORIDE
     Dosage: UNK
     Route: 065
  10. TPN [Concomitant]
     Active Substance: AMINO ACIDS\DEXTROSE\ELECTROLYTES NOS\SOYBEAN OIL
     Indication: Short-bowel syndrome
     Dosage: UNK
     Route: 065

REACTIONS (14)
  - Sepsis [Recovered/Resolved]
  - Stoma obstruction [Recovered/Resolved]
  - Gastrointestinal stoma output increased [Unknown]
  - Weight increased [Unknown]
  - Nausea [Unknown]
  - Decreased appetite [Recovering/Resolving]
  - Abdominal pain [Recovered/Resolved]
  - Abdominal distension [Not Recovered/Not Resolved]
  - Dehydration [Unknown]
  - Gastrointestinal bacterial overgrowth [Recovering/Resolving]
  - Stoma site inflammation [Unknown]
  - Stoma site discharge [Unknown]
  - Inappropriate schedule of product administration [Unknown]
  - Gastrointestinal disorder [Unknown]

NARRATIVE: CASE EVENT DATE: 20211001
